FAERS Safety Report 7356767-6 (Version None)
Quarter: 2011Q1

REPORT INFORMATION
  Report Type: 
  Country: None (occurrence: None)
  Receive Date: 20110316
  Receipt Date: 20110303
  Transmission Date: 20110831
  Serious: Yes (Other)
  Sender: FDA-Public Use
  Company Number: PHHY2011JP17942

PATIENT
  Sex: Female

DRUGS (1)
  1. ZADITEN [Suspect]
     Indication: SEASONAL ALLERGY
     Dosage: 1 DF, QD
     Route: 048
     Dates: start: 20110301, end: 20110302

REACTIONS (6)
  - URTICARIA [None]
  - OEDEMA PERIPHERAL [None]
  - CHOKING SENSATION [None]
  - PRURITUS GENERALISED [None]
  - FACE OEDEMA [None]
  - DIARRHOEA [None]
